FAERS Safety Report 11908452 (Version 2)
Quarter: 2016Q2

REPORT INFORMATION
  Report Type: Report from Study
  Country: US (occurrence: US)
  Receive Date: 20160111
  Receipt Date: 20160617
  Transmission Date: 20160815
  Serious: Yes (Death, Other)
  Sender: FDA-Public Use
  Company Number: US-TAKEDA-2016MPI000123

PATIENT
  Age: 56 Year
  Sex: Male

DRUGS (2)
  1. ONDANSETRON [Concomitant]
     Active Substance: ONDANSETRON
     Dosage: 8 MG, UNK
     Route: 048
  2. VELCADE [Suspect]
     Active Substance: BORTEZOMIB
     Indication: AMYLOIDOSIS
     Dosage: 4.0 MG, UNK
     Route: 058
     Dates: start: 20151116, end: 20151222

REACTIONS (2)
  - Off label use [Unknown]
  - Amyloidosis [Fatal]

NARRATIVE: CASE EVENT DATE: 20151229
